FAERS Safety Report 4571149-8 (Version None)
Quarter: 2005Q1

REPORT INFORMATION
  Report Type: 
  Country: None (occurrence: None)
  Receive Date: 20050202
  Receipt Date: 20050120
  Transmission Date: 20050727
  Serious: Yes (Other)
  Sender: FDA-Public Use
  Company Number: 2005016512

PATIENT
  Age: 70 Year
  Sex: Male

DRUGS (3)
  1. ZITHROMAX [Suspect]
     Indication: CHRONIC OBSTRUCTIVE PULMONARY DISEASE
     Dosage: 500 MG (500 MG, ONCE), INTRAVENOUS
     Route: 042
     Dates: start: 20050116, end: 20050116
  2. PREDNISONE TAB [Concomitant]
  3. ALL OTHER THERAPEUTIC PRODUCTS [Concomitant]

REACTIONS (1)
  - ANAPHYLACTIC SHOCK [None]
